FAERS Safety Report 12111206 (Version 1)
Quarter: 2016Q1

REPORT INFORMATION
  Report Type: Other
  Country: GB (occurrence: GB)
  Receive Date: 20160224
  Receipt Date: 20160224
  Transmission Date: 20160526
  Serious: Yes (Other)
  Sender: FDA-Public Use
  Company Number: GB-MYLANLABS-2016M1006689

PATIENT

DRUGS (9)
  1. AMITRIPTYLINE HYDROCHLORIDE. [Concomitant]
     Active Substance: AMITRIPTYLINE HYDROCHLORIDE
     Dosage: AT NIGHT.
     Dates: start: 20150821
  2. ROPINIROLE. [Concomitant]
     Active Substance: ROPINIROLE
     Dosage: 1 TO BE TAKEN AT NIGHT INCREACING TO 2 AT NIGHT
     Dates: start: 20151214, end: 20160113
  3. ALENDRONATE [Suspect]
     Active Substance: ALENDRONATE SODIUM
     Dosage: UNK
     Dates: start: 20160203
  4. SERTRALINE [Concomitant]
     Active Substance: SERTRALINE HYDROCHLORIDE
     Dosage: 1 DF, QD
     Dates: start: 20150518
  5. AMOXICILLIN. [Concomitant]
     Active Substance: AMOXICILLIN
     Dosage: 1 DF, TID
     Dates: start: 20151231, end: 20160105
  6. ADCAL                              /00056901/ [Concomitant]
     Active Substance: CARBAZOCHROME
     Dosage: LEMON.
     Dates: start: 20091106
  7. COCODAMOL [Concomitant]
     Active Substance: ACETAMINOPHEN\CODEINE PHOSPHATE
     Dosage: 2 DF, UNK (4 TIMES A DAY.)
     Dates: start: 20100705
  8. IBUPROFEN. [Concomitant]
     Active Substance: IBUPROFEN
     Dosage: 1 DF, UNK (3 TIMES A DAY WITH FOOD.)
     Dates: start: 20150821
  9. SOFRADEX                           /00049501/ [Concomitant]
     Dosage: AS DIRECTED.
     Dates: start: 20140903

REACTIONS (1)
  - Osteonecrosis [Not Recovered/Not Resolved]

NARRATIVE: CASE EVENT DATE: 20160203
